FAERS Safety Report 14834578 (Version 1)
Quarter: 2018Q2

REPORT INFORMATION
  Report Type: Spontaneous
  Country: FR (occurrence: FR)
  Receive Date: 20180501
  Receipt Date: 20180501
  Transmission Date: 20180711
  Serious: Yes (Hospitalization, Other)
  Sender: FDA-Public Use
  Company Number: FR-MYLANLABS-2018M1027569

PATIENT
  Age: 46 Year
  Sex: Male

DRUGS (1)
  1. TRIAMCINOLONE [Suspect]
     Active Substance: TRIAMCINOLONE
     Indication: ARTHRITIS
     Dosage: UNK
     Route: 014

REACTIONS (2)
  - Arthritis infective [Recovered/Resolved]
  - Bacterial infection [Recovered/Resolved]
